FAERS Safety Report 19937249 (Version 1)
Quarter: 2021Q4

REPORT INFORMATION
  Report Type: Spontaneous
  Country: CN (occurrence: CN)
  Receive Date: 20211010
  Receipt Date: 20211010
  Transmission Date: 20220303
  Serious: Yes (Hospitalization, Other)
  Sender: FDA-Public Use
  Company Number: CN-BAXTER-2021BAX026432

PATIENT
  Age: 56 Year
  Sex: Female
  Weight: 53 kg

DRUGS (9)
  1. CYCLOPHOSPHAMIDE [Suspect]
     Active Substance: CYCLOPHOSPHAMIDE
     Indication: Non-Hodgkin^s lymphoma
     Route: 065
  2. CYCLOPHOSPHAMIDE [Suspect]
     Active Substance: CYCLOPHOSPHAMIDE
     Dosage: 0.9% NS 100ML + CYCLOPHOSPHAMIDE 1.1G, FIFTH CYCLE
     Route: 041
     Dates: start: 20191010, end: 20191010
  3. SODIUM CHLORIDE [Suspect]
     Active Substance: SODIUM CHLORIDE
     Indication: Medication dilution
     Dosage: CYCLOPHOSPHAMIDE FOR INJECTION (1.1G)+ 0.9% SODIUM CHLORIDE(100ML)
     Route: 041
     Dates: start: 20191010, end: 20191010
  4. SODIUM CHLORIDE [Suspect]
     Active Substance: SODIUM CHLORIDE
     Dosage: VINCRISTINE SULFATE(2 MG) + 0.9%SODIUM CHLORIDE(100ML)
     Route: 041
     Dates: start: 20191010, end: 20191010
  5. DEXTROSE [Suspect]
     Active Substance: DEXTROSE
     Indication: Medication dilution
     Dosage: 5% GS 250ML + PIRARUBICIN 75MG
     Route: 041
     Dates: start: 20191010, end: 20191010
  6. VINCRISTINE SULFATE [Suspect]
     Active Substance: VINCRISTINE SULFATE
     Indication: Non-Hodgkin^s lymphoma
     Route: 065
  7. VINCRISTINE SULFATE [Suspect]
     Active Substance: VINCRISTINE SULFATE
     Dosage: 0.9% NS 100ML + VINCRISTINE 2MG, FIFTH CYCLE
     Route: 041
     Dates: start: 20191010, end: 20191010
  8. PIRARUBICIN HYDROCHLORIDE [Suspect]
     Active Substance: PIRARUBICIN HYDROCHLORIDE
     Indication: Non-Hodgkin^s lymphoma
     Dosage: 5% GS 250ML + PIRARUBICIN 75MG, FIFTH CYCLE
     Route: 041
     Dates: start: 20191010, end: 20191010
  9. PREDNISONE ACETATE [Suspect]
     Active Substance: PREDNISONE ACETATE
     Indication: Non-Hodgkin^s lymphoma
     Dosage: FIFTH CYCLE
     Route: 048
     Dates: start: 20191010, end: 20191015

REACTIONS (4)
  - Myelosuppression [Recovered/Resolved]
  - Myelosuppression [Recovering/Resolving]
  - Agranulocytosis [Recovering/Resolving]
  - Pyrexia [Recovered/Resolved]

NARRATIVE: CASE EVENT DATE: 20191015
